FAERS Safety Report 23241909 (Version 1)
Quarter: 2023Q4

REPORT INFORMATION
  Report Type: Spontaneous
  Country: AR (occurrence: AR)
  Receive Date: 20231129
  Receipt Date: 20231129
  Transmission Date: 20240110
  Serious: Yes (Other)
  Sender: FDA-Public Use
  Company Number: AR-AMGEN-ARGSP2023210751

PATIENT

DRUGS (5)
  1. BLINATUMOMAB [Suspect]
     Active Substance: BLINATUMOMAB
     Indication: Acute lymphocytic leukaemia
     Dosage: (4 PATIENT 2 CYCLES AND 6 PATIENT 1 CYCLE), DRIP
     Route: 042
  2. BLINATUMOMAB [Suspect]
     Active Substance: BLINATUMOMAB
     Indication: Philadelphia chromosome positive
     Dosage: (4 PATIENT 2 CYCLES), DRIP
     Route: 042
  3. BLINATUMOMAB [Suspect]
     Active Substance: BLINATUMOMAB
     Indication: Acute lymphocytic leukaemia
  4. BLINATUMOMAB [Suspect]
     Active Substance: BLINATUMOMAB
     Indication: Acute lymphocytic leukaemia
  5. BLINATUMOMAB [Suspect]
     Active Substance: BLINATUMOMAB
     Indication: Acute lymphocytic leukaemia

REACTIONS (9)
  - Cerebrovascular accident [Unknown]
  - Post stroke seizure [Unknown]
  - Hypogammaglobulinaemia [Unknown]
  - Seizure [Unknown]
  - Cytokine release syndrome [Unknown]
  - Vascular access device culture positive [Unknown]
  - Staphylococcus test positive [Unknown]
  - Headache [Unknown]
  - Pyrexia [Unknown]
